FAERS Safety Report 8967729 (Version 1)
Quarter: 2012Q4

REPORT INFORMATION
  Report Type: Spontaneous
  Country: DE (occurrence: None)
  Receive Date: 20121210
  Receipt Date: 20121210
  Transmission Date: 20130627
  Serious: Yes (Other)
  Sender: FDA-Public Use
  Company Number: GER/GER/12/0026956

PATIENT
  Age: 65 Year
  Sex: Female

DRUGS (4)
  1. CIPROFLOXACIN (CIPROFLOXACIN) [Suspect]
     Indication: DRUG USE FOR UNKNOWN INDICATION
  2. TAMOXIFEN [Suspect]
     Indication: BREAST CANCER
     Route: 048
  3. HYDROCHLOROTHIAZIDE (HYDROCHLOROTHIAZIDE) [Concomitant]
  4. LOSARTAN (LOSARTAN) [Concomitant]

REACTIONS (1)
  - Circulatory collapse [None]
